FAERS Safety Report 20153780 (Version 1)
Quarter: 2021Q4

REPORT INFORMATION
  Report Type: Report from Study
  Country: US (occurrence: US)
  Receive Date: 20211207
  Receipt Date: 20211207
  Transmission Date: 20220303
  Serious: Yes (Death, Hospitalization, Other)
  Sender: FDA-Public Use
  Company Number: US-ACADIA PHARMACEUTICALS INC.-ACA-2021-PIM-004018

PATIENT
  Age: 66 Year
  Sex: Female

DRUGS (54)
  1. NUPLAZID [Suspect]
     Active Substance: PIMAVANSERIN TARTRATE
     Indication: Parkinson^s disease psychosis
     Dosage: 34 MILLIGRAM, QD
     Route: 048
     Dates: start: 20210802, end: 202108
  2. NUPLAZID [Suspect]
     Active Substance: PIMAVANSERIN TARTRATE
     Indication: Hallucination
  3. NUPLAZID [Suspect]
     Active Substance: PIMAVANSERIN TARTRATE
     Indication: Delusion
  4. PROAIR HFA [Concomitant]
     Active Substance: ALBUTEROL SULFATE
     Dosage: INHALE INTO THE LUNGS
  5. SYMMETREL [Concomitant]
     Active Substance: AMANTADINE HYDROCHLORIDE
     Dosage: 1 CAPSULE 2 TIMES DAILY
     Route: 048
     Dates: start: 20210412
  6. NORVASC [Concomitant]
     Active Substance: AMLODIPINE BESYLATE
     Dosage: 2.5 MILLIGRAM QD
     Route: 048
     Dates: start: 20191008
  7. LIPITOR [Concomitant]
     Active Substance: ATORVASTATIN CALCIUM
     Dosage: 80 MILLIGRAM, QD
     Route: 048
  8. LOTENSIN [Concomitant]
     Active Substance: BENAZEPRIL HYDROCHLORIDE
     Dosage: 10 MILLIGRAM
     Route: 048
  9. PULMICORT TURBUHALER [Concomitant]
     Active Substance: BUDESONIDE
     Dosage: 0.5 MG/2ML, 0.5 MG 2 TIMES DAILY, BY NEBULIZATION
     Route: 050
  10. OSCAL D [CALCIUM CARBONATE;VITAMIN D NOS] [Concomitant]
     Dosage: 500 MG-200 UNITS PER TABLET DAILY
     Route: 048
  11. SINEMET [Concomitant]
     Active Substance: CARBIDOPA\LEVODOPA
     Dosage: 50-200MG , 3 TABLETS IN MORNINGAND 3 TABLETS IN EVENING
     Route: 048
     Dates: start: 20210507
  12. SINEMET [Concomitant]
     Active Substance: CARBIDOPA\LEVODOPA
     Dosage: 25-100 MG, 3 TABLETS DAILY AFTERNOON DOSE
     Route: 048
     Dates: start: 20210507
  13. OMNICEF [CEFOTAXIME SODIUM] [Concomitant]
     Dosage: 300 MILLIGRAM, QD
     Route: 048
     Dates: start: 20180927
  14. ZYRTEC [Concomitant]
     Active Substance: CETIRIZINE HYDROCHLORIDE
     Dosage: 10 MILLIGRAM, QD
     Route: 048
  15. FLEXERIL [Concomitant]
     Active Substance: CYCLOBENZAPRINE HYDROCHLORIDE
     Dosage: 10 MILLIGRAM, BID
     Route: 048
  16. VOLTAREN [Concomitant]
     Active Substance: DICLOFENAC SODIUM
     Dosage: 50 MILLIGRAM, BID
     Route: 048
  17. ARTHROTEC [Concomitant]
     Active Substance: DICLOFENAC SODIUM\MISOPROSTOL
     Dosage: 70-0.2 MG, 2 TABLET 2 TIMES DAILY
     Route: 048
  18. CYMBALTA [Concomitant]
     Active Substance: DULOXETINE HYDROCHLORIDE
     Dosage: 120 MILLIGRAM, QD
     Route: 048
  19. PEPCID [Concomitant]
     Active Substance: FAMOTIDINE
     Dosage: 40 MILLIGRAM, BID
     Route: 048
     Dates: start: 20200221
  20. PEPCID [Concomitant]
     Active Substance: FAMOTIDINE
     Dosage: 20 MILLIGRAM, QD, AT BESTIME
     Route: 048
     Dates: start: 20210716
  21. NEURONTIN [Concomitant]
     Active Substance: GABAPENTIN
     Indication: Neuropathy peripheral
     Dosage: 3 CAPSULE (300 MG) MIGHTLY
     Route: 048
     Dates: start: 20150730
  22. NEURONTIN [Concomitant]
     Active Substance: GABAPENTIN
     Dosage: 600 MILLIGRAM, TID
     Route: 048
     Dates: start: 20210716
  23. NEURONTIN [Concomitant]
     Active Substance: GABAPENTIN
     Indication: Neuropathy peripheral
     Dosage: 600 MILLIGRAM, TID
     Route: 048
     Dates: start: 20210716
  24. HYDRODIURIL [Concomitant]
     Active Substance: HYDROCHLOROTHIAZIDE
     Dosage: 12.5 MG DAILY
     Route: 048
     Dates: start: 20210716
  25. LEVEMIR [Concomitant]
     Active Substance: INSULIN DETEMIR
     Dosage: 70 UNITS NIGHTLY
     Route: 058
  26. LANTUS [Concomitant]
     Active Substance: INSULIN GLARGINE
     Dosage: 100 UNIT/ML, 65 UNITS ONCE DAILY
     Route: 058
  27. HUMALOG HD KWIKPEN [Concomitant]
     Dosage: 10 UNITS UNDER SKIN
     Route: 058
  28. SYNTHROID [Concomitant]
     Active Substance: LEVOTHYROXINE SODIUM
     Dosage: 75 MICROGRAM, QD, EVERY MORNING
     Route: 048
  29. SYNTHROID [Concomitant]
     Active Substance: LEVOTHYROXINE SODIUM
     Dosage: 100 MICROGRAM, QD
     Route: 048
     Dates: start: 20210716
  30. ATIVAN [Concomitant]
     Active Substance: LORAZEPAM
     Dosage: 1 MILLIGRAM, TID
     Route: 048
     Dates: start: 20190307
  31. ATIVAN [Concomitant]
     Active Substance: LORAZEPAM
     Dosage: 0.5 MG, 1 TABLET BY MOUTH EVERY MORNING AND 2 TABLETS EVERY EVENING
     Route: 048
     Dates: start: 20210701
  32. GLUCOPHAGE XR [Concomitant]
     Active Substance: METFORMIN HYDROCHLORIDE
     Dosage: 500 MILLIGRAM, BID (24 HR TABLET)
     Route: 048
     Dates: start: 20180515
  33. GLUMETZA [Concomitant]
     Active Substance: METFORMIN HYDROCHLORIDE
     Dosage: 500 MILLIGRAM, BID, WITH FOOD
     Route: 048
     Dates: start: 20210716
  34. METOLAZONE [Concomitant]
     Active Substance: METOLAZONE
     Dosage: 5 MILLIGRAM, QD
     Route: 048
     Dates: start: 20210630
  35. TOPROL XL [Concomitant]
     Active Substance: METOPROLOL SUCCINATE
     Dosage: 25 MILLIGRAM
     Dates: start: 20190307
  36. SINGULAIR [Concomitant]
     Active Substance: MONTELUKAST SODIUM
     Dosage: 10 MILLIGRAM, QD
     Route: 048
     Dates: start: 20190307
  37. KADIAN [Concomitant]
     Active Substance: MORPHINE SULFATE
     Indication: Neuropathy peripheral
     Dosage: 60 MILLIGRAM, BID
     Route: 048
  38. KADIAN [Concomitant]
     Active Substance: MORPHINE SULFATE
     Dosage: 60 MILLIGRAM, QD
     Route: 048
  39. KADIAN [Concomitant]
     Active Substance: MORPHINE SULFATE
     Dosage: 30 MILLIGRAM, BID
     Route: 048
  40. KADIAN [Concomitant]
     Active Substance: MORPHINE SULFATE
     Dosage: LIQUID MORPHINE AS NEEDED
     Route: 048
  41. MS CONTIN [Concomitant]
     Active Substance: MORPHINE SULFATE
     Dosage: 30 MILLIGRAM, BID, EVERY MORNING AND MID DAY
     Route: 048
     Dates: start: 20210703
  42. ROXANOL [Concomitant]
     Active Substance: MORPHINE SULFATE
     Indication: Breakthrough pain
     Dosage: 20 MG/ML, 0.25 ML EVERY HOUR AS NEEDED
     Route: 048
     Dates: start: 20210716
  43. NITROSTAT [Concomitant]
     Active Substance: NITROGLYCERIN
     Indication: Chest pain
     Dosage: DISSOLVE 1 TABLET UNDER THE TONGUE EVERY 5 MINUTES AS NEEDED, DO NOT EXCEED A TOTAL OF 3 DOSES IN 15
     Route: 060
     Dates: start: 20210615
  44. ZOFRAN [Concomitant]
     Active Substance: ONDANSETRON HYDROCHLORIDE
     Indication: Nausea
     Dosage: 4 MILLIGRAM, EVERY 8 HOURS
     Route: 048
  45. DAYPRO [Concomitant]
     Active Substance: OXAPROZIN
     Dosage: 600 MILLIGRAM, BID
     Route: 048
     Dates: start: 20210707
  46. KLOR-CON [Concomitant]
     Active Substance: POTASSIUM CHLORIDE
     Dosage: 10 MILLIEQUIVALENT, BID
     Route: 048
     Dates: start: 20210716
  47. K-DUR [Concomitant]
     Active Substance: POTASSIUM CHLORIDE
     Dosage: 10 MILLIEQUIVALENT, BID
     Route: 048
  48. ZANTAC [Concomitant]
     Active Substance: RANITIDINE HYDROCHLORIDE
     Dosage: 150 MILLIGRAM, BID
     Route: 048
  49. REXULTI [Concomitant]
     Active Substance: BREXPIPRAZOLE
     Dosage: 2 MILLIGRAM, QD
     Route: 048
     Dates: start: 20180917
  50. REQUIP [Concomitant]
     Active Substance: ROPINIROLE HYDROCHLORIDE
     Dosage: 1 MILLIGRAM, QD, NIGHTLY
     Route: 048
  51. ZANAFLEX [Concomitant]
     Active Substance: TIZANIDINE HYDROCHLORIDE
     Indication: Muscle spasms
     Dosage: 2 MILLIGRAM, QD, EVERY 8 HOURS
     Route: 048
     Dates: start: 20190325
  52. uncoded dme [Concomitant]
     Dosage: 10 UNITS
     Dates: start: 20180822
  53. VENTOLIN HFA [Concomitant]
     Active Substance: ALBUTEROL SULFATE
     Indication: Dyspnoea
     Dosage: INHALE 2 PUFFS EVERY 4 HOURS AS NEEDED
     Route: 048
     Dates: start: 20210716
  54. VICTOZA [Concomitant]
     Active Substance: LIRAGLUTIDE
     Dosage: 18 MG/3ML, 1.8 MG DAILY
     Route: 058
     Dates: start: 20210412

REACTIONS (4)
  - Haemoglobin increased [Recovered/Resolved]
  - Bradycardia [Recovered/Resolved]
  - Hypotension [Recovered/Resolved]
  - Fall [Recovered/Resolved]

NARRATIVE: CASE EVENT DATE: 20210807
